FAERS Safety Report 25773590 (Version 1)
Quarter: 2025Q3

REPORT INFORMATION
  Report Type: Report from Study
  Country: US (occurrence: US)
  Receive Date: 20250908
  Receipt Date: 20250908
  Transmission Date: 20251021
  Serious: Yes (Other)
  Sender: MYLAN
  Company Number: US-MYLANLABS-2025M1075836

PATIENT
  Sex: Male

DRUGS (17)
  1. SPIRONOLACTONE [Suspect]
     Active Substance: SPIRONOLACTONE
     Indication: Weight decreased
  2. DUPILUMAB [Suspect]
     Active Substance: DUPILUMAB
     Indication: Nasal polyps
  3. AMLODIPINE [Suspect]
     Active Substance: AMLODIPINE BESYLATE
     Indication: Product used for unknown indication
  4. VITAMIN D3 [Concomitant]
     Active Substance: CHOLECALCIFEROL
  5. ZINC [Concomitant]
     Active Substance: ZINC
  6. LISINOPRIL [Concomitant]
     Active Substance: LISINOPRIL
  7. VABYSMO [Concomitant]
     Active Substance: FARICIMAB-SVOA
  8. ATENOLOL [Concomitant]
     Active Substance: ATENOLOL
  9. ASMANEX [Concomitant]
     Active Substance: MOMETASONE FUROATE
  10. TRAMADOL [Concomitant]
     Active Substance: TRAMADOL
  11. NORTRIPTYLINE [Concomitant]
     Active Substance: NORTRIPTYLINE
  12. METFORMIN [Concomitant]
     Active Substance: METFORMIN HYDROCHLORIDE
  13. FLUTICASONE [Concomitant]
     Active Substance: FLUTICASONE
  14. VITAMIN C [Concomitant]
     Active Substance: ASCORBIC ACID
  15. OCUVITE [Concomitant]
     Active Substance: VITAMINS
  16. FLOMAX [Concomitant]
     Active Substance: TAMSULOSIN HYDROCHLORIDE
  17. MOUNJARO [Concomitant]
     Active Substance: TIRZEPATIDE
     Indication: Diabetes mellitus

REACTIONS (13)
  - Hypotension [Unknown]
  - Diabetes mellitus [Unknown]
  - Nasal congestion [Unknown]
  - Upper-airway cough syndrome [Unknown]
  - Symptom recurrence [Unknown]
  - Knee arthroplasty [Unknown]
  - Ocular discomfort [Unknown]
  - Eye pruritus [Unknown]
  - Dry eye [Unknown]
  - Drug hypersensitivity [Unknown]
  - Joint swelling [Unknown]
  - Skin warm [Unknown]
  - Weight decreased [Unknown]

NARRATIVE: CASE EVENT DATE: 20240101
